FAERS Safety Report 5022109-4 (Version None)
Quarter: 2006Q2

REPORT INFORMATION
  Report Type: 
  Country: None (occurrence: None)
  Receive Date: 20060609
  Receipt Date: 20060601
  Transmission Date: 20061013
  Serious: Yes (Hospitalization)
  Sender: FDA-Public Use
  Company Number: US-JNJFOC-20060600309

PATIENT
  Sex: Female

DRUGS (13)
  1. REMICADE [Suspect]
     Indication: RHEUMATOID ARTHRITIS
     Route: 042
  2. METHOTREXATE [Concomitant]
  3. PLAQUENIL [Concomitant]
  4. PREDNISONE [Concomitant]
  5. ACTONEL [Concomitant]
  6. CENTRUM SILVER [Concomitant]
  7. CENTRUM SILVER [Concomitant]
  8. CENTRUM SILVER [Concomitant]
  9. CENTRUM SILVER [Concomitant]
  10. CENTRUM SILVER [Concomitant]
  11. CENTRUM SILVER [Concomitant]
  12. CENTRUM SILVER [Concomitant]
  13. CENTRUM SILVER [Concomitant]

REACTIONS (5)
  - ASTHMA [None]
  - ELECTROCARDIOGRAM ST SEGMENT ABNORMAL [None]
  - INFLUENZA [None]
  - OBLITERATIVE BRONCHIOLITIS [None]
  - PNEUMONIA [None]
